FAERS Safety Report 19814443 (Version 1)
Quarter: 2021Q3

REPORT INFORMATION
  Report Type: Spontaneous
  Country: ES (occurrence: ES)
  Receive Date: 20210909
  Receipt Date: 20210909
  Transmission Date: 20211014
  Serious: Yes (Other)
  Sender: FDA-Public Use
  Company Number: ES-MYLANLABS-2021M1060122

PATIENT
  Age: 7 Year
  Sex: Female
  Weight: 24.9 kg

DRUGS (1)
  1. TOPIRAMATE. [Suspect]
     Active Substance: TOPIRAMATE
     Indication: MIGRAINE PROPHYLAXIS
     Dosage: 12.5 MILLIGRAM, BID (MEDIO COMP/12 H)
     Route: 048
     Dates: start: 20190312, end: 20190329

REACTIONS (3)
  - Aggression [Recovered/Resolved]
  - Affective disorder [Recovered/Resolved]
  - Hallucination, visual [Recovered/Resolved]

NARRATIVE: CASE EVENT DATE: 20190320
